FAERS Safety Report 6536386 (Version 14)
Quarter: 2015Q1

REPORT INFORMATION
  Report Type: Spontaneous
  Country: US (occurrence: US)
  Receive Date: 20080128
  Receipt Date: 20150114
  Transmission Date: 20150721
  Serious: Yes (Other)
  Sender: FDA-Public Use
  Company Number: US-ROCHE-512843

PATIENT
  Age: 29 Year
  Sex: Female
  Weight: 65.8 kg

DRUGS (17)
  1. CLEOCIN T [Concomitant]
     Active Substance: CLINDAMYCIN PHOSPHATE
     Route: 065
  2. PREVACID [Concomitant]
     Active Substance: LANSOPRAZOLE
     Route: 065
  3. SULFAMETHOXAZOLE/TRIMETHOPRIM [Concomitant]
     Active Substance: SULFAMETHOXAZOLE\TRIMETHOPRIM
     Route: 065
  4. ERYTHROMYCIN. [Concomitant]
     Active Substance: ERYTHROMYCIN
  5. RETIN-A [Concomitant]
     Active Substance: TRETINOIN
  6. ACCUTANE [Suspect]
     Active Substance: ISOTRETINOIN
     Dosage: REPORTED AS 40MG BID ALTERNATING WITH 40 MG OD
     Route: 048
     Dates: start: 20030609, end: 20031019
  7. CLINDAMYCIN LOTION [Concomitant]
     Route: 065
  8. SULFAMETHOXAZOLE/TRIMETHOPRIM [Concomitant]
     Active Substance: SULFAMETHOXAZOLE\TRIMETHOPRIM
     Route: 065
  9. PLEXION [Concomitant]
     Active Substance: SULFACETAMIDE SODIUM\SULFUR
     Indication: ACNE
     Route: 065
  10. DOXYCYCLINE. [Concomitant]
     Active Substance: DOXYCYCLINE
     Indication: ACNE
     Route: 065
  11. MINOCYCLINE [Concomitant]
     Active Substance: MINOCYCLINE\MINOCYCLINE HYDROCHLORIDE
     Indication: ACNE
     Route: 065
  12. ACCUTANE [Suspect]
     Active Substance: ISOTRETINOIN
     Indication: ACNE CYSTIC
     Dosage: REPORTED AS 40MG OD
     Route: 048
  13. ORTHO TRI CYCLEN [Concomitant]
     Active Substance: ETHINYL ESTRADIOL\NORGESTIMATE
     Indication: CONTRACEPTION
  14. SULFAMETHOXAZOLE/TRIMETHOPRIM [Concomitant]
     Active Substance: SULFAMETHOXAZOLE\TRIMETHOPRIM
     Indication: ACNE
     Route: 065
  15. METROCREAM [Concomitant]
     Active Substance: METRONIDAZOLE
     Indication: ACNE
     Route: 065
  16. CLEOCIN T [Concomitant]
     Active Substance: CLINDAMYCIN PHOSPHATE
     Indication: ACNE
     Route: 065
  17. CLINDAMYCIN [Concomitant]
     Active Substance: CLINDAMYCIN\CLINDAMYCIN PHOSPHATE
     Indication: ACNE
     Route: 065

REACTIONS (21)
  - Myositis [Unknown]
  - Back pain [Unknown]
  - Large intestine polyp [Unknown]
  - Depression [Unknown]
  - Colitis [Unknown]
  - Salivary gland mucocoele [Unknown]
  - Pain [Unknown]
  - Dry skin [Unknown]
  - Crohn^s disease [Unknown]
  - Adenoma benign [Recovered/Resolved]
  - Ovarian cyst [Recovered/Resolved]
  - Myalgia [Unknown]
  - Adnexa uteri mass [Recovering/Resolving]
  - Road traffic accident [Unknown]
  - Scoliosis [Unknown]
  - Colitis ulcerative [Unknown]
  - Gastrointestinal disorder [Unknown]
  - Hepatic cyst [Recovering/Resolving]
  - Inflammatory bowel disease [Unknown]
  - Proctitis [Unknown]
  - Irritable bowel syndrome [Unknown]

NARRATIVE: CASE EVENT DATE: 20030609
